FAERS Safety Report 7350083-4 (Version None)
Quarter: 2011Q1

REPORT INFORMATION
  Report Type: 
  Country: None (occurrence: None)
  Receive Date: 20110314
  Receipt Date: 20110308
  Transmission Date: 20110831
  Serious: Yes (Hospitalization)
  Sender: FDA-Public Use
  Company Number: A0865650A

PATIENT
  Age: 67 Year
  Sex: Male

DRUGS (6)
  1. LIPITOR [Concomitant]
  2. AVANDIA [Suspect]
     Dosage: 8MG PER DAY
     Route: 048
     Dates: start: 20060305, end: 20080408
  3. COZAAR [Concomitant]
  4. LAMISIL [Concomitant]
  5. NOVOLOG [Concomitant]
  6. GLUCOVANCE [Concomitant]

REACTIONS (2)
  - CEREBROVASCULAR ACCIDENT [None]
  - TRANSIENT ISCHAEMIC ATTACK [None]
